FAERS Safety Report 20176864 (Version 1)
Quarter: 2021Q4

REPORT INFORMATION
  Report Type: Spontaneous
  Country: US (occurrence: US)
  Receive Date: 20211213
  Receipt Date: 20211213
  Transmission Date: 20220303
  Serious: Yes (Hospitalization, Other)
  Sender: FDA-Public Use
  Company Number: US-GLAXOSMITHKLINE-USCH2021GSK088749

PATIENT
  Age: 10 Year
  Sex: Male

DRUGS (2)
  1. IBUPROFEN [Suspect]
     Active Substance: IBUPROFEN
     Indication: Pharyngitis streptococcal
     Dosage: UNK
  2. AMOXICILLIN [Suspect]
     Active Substance: AMOXICILLIN
     Indication: Pharyngitis streptococcal
     Dosage: UNK

REACTIONS (11)
  - Tubulointerstitial nephritis [Recovered/Resolved]
  - Periorbital oedema [Recovered/Resolved]
  - Decreased activity [Recovered/Resolved]
  - Hypophagia [Recovered/Resolved]
  - Dehydration [Recovered/Resolved]
  - Pallor [Recovered/Resolved]
  - Oedema peripheral [Recovered/Resolved]
  - Abdominal distension [Recovered/Resolved]
  - Kidney enlargement [Recovered/Resolved]
  - Secondary amyloidosis [Recovered/Resolved]
  - Acute kidney injury [Recovered/Resolved]
